FAERS Safety Report 11518681 (Version 1)
Quarter: 2015Q3

REPORT INFORMATION
  Report Type: Report from Study
  Country: US (occurrence: US)
  Receive Date: 20150917
  Receipt Date: 20150917
  Transmission Date: 20151125
  Serious: Yes (Hospitalization)
  Sender: FDA-Public Use
  Company Number: US-ACTELION-A-NJ2015-114928

PATIENT
  Age: 63 Year
  Sex: Female

DRUGS (3)
  1. TRACLEER [Suspect]
     Active Substance: BOSENTAN
     Indication: PULMONARY ARTERIAL HYPERTENSION
     Dosage: UNK
     Route: 048
  2. RIOCIGUAT [Suspect]
     Active Substance: RIOCIGUAT
     Indication: PRODUCT USED FOR UNKNOWN INDICATION
     Route: 065
  3. COUMADIN [Concomitant]
     Active Substance: WARFARIN SODIUM

REACTIONS (16)
  - Headache [Unknown]
  - Cardiac failure congestive [Unknown]
  - Neck pain [Unknown]
  - Back pain [Unknown]
  - Nausea [Unknown]
  - Chills [Unknown]
  - Pulmonary oedema [Unknown]
  - Dyspepsia [Unknown]
  - Asthenia [Unknown]
  - Dyspnoea exertional [Unknown]
  - Cough [Unknown]
  - Oedema peripheral [Unknown]
  - Dyspnoea [Unknown]
  - Musculoskeletal pain [Unknown]
  - Abdominal pain [Unknown]
  - Hypersensitivity [Unknown]
